FAERS Safety Report 17456550 (Version 4)
Quarter: 2020Q1

REPORT INFORMATION
  Report Type: Spontaneous
  Country: US (occurrence: US)
  Receive Date: 20200225
  Receipt Date: 20200319
  Transmission Date: 20200409
  Serious: No
  Sender: FDA-Public Use
  Company Number: US-PFIZER INC-2020082232

PATIENT
  Age: 38 Year
  Sex: Female
  Weight: 86 kg

DRUGS (2)
  1. IBRANCE [Suspect]
     Active Substance: PALBOCICLIB
     Dosage: 125 MG, CYCLIC (FOR 21 DAYS ON AND 7 DAYS OFF)
     Route: 048
     Dates: start: 20200217
  2. IBRANCE [Suspect]
     Active Substance: PALBOCICLIB
     Indication: BREAST CANCER FEMALE
     Dosage: 125 MG, CYCLIC (FOR 21 DAYS ON AND 7 DAYS OFF)
     Route: 048
     Dates: start: 20200120, end: 202002

REACTIONS (6)
  - Bone disorder [Not Recovered/Not Resolved]
  - Malaise [Unknown]
  - Pain in extremity [Unknown]
  - Headache [Unknown]
  - Joint swelling [Unknown]
  - Arthralgia [Not Recovered/Not Resolved]

NARRATIVE: CASE EVENT DATE: 2020
